FAERS Safety Report 6120542-0 (Version None)
Quarter: 2009Q1

REPORT INFORMATION
  Report Type: 
  Country: None (occurrence: None)
  Receive Date: 20090317
  Receipt Date: 20090310
  Transmission Date: 20090719
  Serious: Yes (Hospitalization, Other)
  Sender: FDA-Public Use
  Company Number: PHBS2009ES00851

PATIENT
  Age: 34 Year
  Sex: Male

DRUGS (5)
  1. CARBAMAZEPINE [Suspect]
     Indication: BIPOLAR DISORDER
     Dosage: 1000 MG/DAY
  2. VALPROIC ACID [Suspect]
     Indication: BIPOLAR DISORDER
     Dosage: 1500 MG/DAY
  3. LITHIUM CARBONATE [Concomitant]
     Indication: BIPOLAR DISORDER
     Dosage: 1600MG/DAY
  4. CLONAZEPAM [Concomitant]
     Indication: BIPOLAR DISORDER
     Dosage: 2MG/DAY
  5. OLANZAPINE [Concomitant]
     Dosage: 10MG/DAY

REACTIONS (10)
  - ANAEMIA [None]
  - ANISOCYTOSIS [None]
  - APLASIA PURE RED CELL [None]
  - ASTHENIA [None]
  - BLOOD CHOLESTEROL INCREASED [None]
  - BLOOD TRIGLYCERIDES INCREASED [None]
  - HYPOCHROMASIA [None]
  - OVERWEIGHT [None]
  - PALLOR [None]
  - ROULEAUX FORMATION [None]
